FAERS Safety Report 16106035 (Version 2)
Quarter: 2019Q1

REPORT INFORMATION
  Report Type: Report from Study
  Country: DK (occurrence: DK)
  Receive Date: 20190322
  Receipt Date: 20190327
  Transmission Date: 20190418
  Serious: Yes (Life-Threatening)
  Sender: FDA-Public Use
  Company Number: DK-TESAROUBC-2019-TSO01273-DK

PATIENT

DRUGS (32)
  1. NIRAPARIB [Suspect]
     Active Substance: NIRAPARIB
     Indication: OVARIAN CANCER
     Dosage: 200 MG, QD
     Route: 048
     Dates: start: 20170830, end: 20190318
  2. IBUPROFEN. [Concomitant]
     Active Substance: IBUPROFEN
     Dosage: 1200 MG, TID
     Route: 048
     Dates: start: 20180612, end: 20180703
  3. BEVACIZUMAB. [Suspect]
     Active Substance: BEVACIZUMAB
     Indication: OVARIAN CANCER
     Dosage: 1200 MG, EVERY THREE WEEKS
     Route: 042
     Dates: start: 20170830, end: 20180821
  4. IBUPROFEN. [Concomitant]
     Active Substance: IBUPROFEN
     Indication: MUSCULOSKELETAL PAIN
     Dosage: 200 MG, PRN
     Route: 048
     Dates: start: 20170814, end: 20180123
  5. ACYCLOVIR                          /00587301/ [Concomitant]
     Active Substance: ACYCLOVIR
     Indication: HERPES ZOSTER
     Dosage: 2400 MG, TID
     Route: 048
     Dates: start: 20171004, end: 20171011
  6. LERCANIDIPINE [Concomitant]
     Active Substance: LERCANIDIPINE
     Indication: HYPERTENSION
     Dosage: 10 MG, QD
     Route: 048
     Dates: start: 20180820, end: 20181024
  7. SIMVASTATIN. [Concomitant]
     Active Substance: SIMVASTATIN
     Indication: BLOOD CHOLESTEROL INCREASED
     Dosage: 40 MG, QD
     Route: 048
     Dates: start: 20180820, end: 20190312
  8. PREDNISONE. [Concomitant]
     Active Substance: PREDNISONE
     Indication: PROPHYLAXIS
     Dosage: 100 MG, ONCE (ONE TIME INTERVENTION)
     Route: 048
     Dates: start: 20180619, end: 20180619
  9. MACROGOL [Concomitant]
     Active Substance: POLYETHYLENE GLYCOLS
     Indication: CONSTIPATION
     Dosage: 10050 MG, TID
     Route: 048
     Dates: start: 20190207, end: 20190214
  10. PANTOPRAZOL                        /01263201/ [Concomitant]
     Active Substance: PANTOPRAZOLE
     Indication: GASTRIC ULCER
     Dosage: 40 MG, QAM (IN THE MORNING)
     Route: 048
     Dates: start: 20190208, end: 20190215
  11. CLEMASTINE [Concomitant]
     Active Substance: CLEMASTINE
     Indication: THROMBOSIS PROPHYLAXIS
     Dosage: 2 MG, ONCE (ONE TIME INTERVENTION)
     Route: 042
     Dates: start: 20180213, end: 20180213
  12. IBUPROFEN. [Concomitant]
     Active Substance: IBUPROFEN
     Indication: PAIN
     Dosage: 1600 MG, QID
     Route: 048
     Dates: start: 20180123, end: 20180619
  13. ONDANSETRON [Concomitant]
     Active Substance: ONDANSETRON
     Indication: NAUSEA
     Dosage: 4 MG, TID
     Route: 042
     Dates: start: 20190207, end: 20190211
  14. ENOXAPARIN [Concomitant]
     Active Substance: ENOXAPARIN
     Indication: THROMBOSIS PROPHYLAXIS
     Dosage: 40 MG, HS (AT BEDTIME)
     Route: 060
     Dates: start: 20190207, end: 20190212
  15. POTASSIUM CHLORIDE. [Concomitant]
     Active Substance: POTASSIUM CHLORIDE
     Indication: SUPPLEMENTATION THERAPY
     Dosage: 750 MG, QAM (IN THE MORNING)
     Route: 048
     Dates: start: 20190210, end: 20190213
  16. ATORVASTATIN [Concomitant]
     Active Substance: ATORVASTATIN
     Indication: HYPERCHOLESTEROLAEMIA
     Dosage: 40 MG,  QAM (IN THE MORNING)
     Route: 048
     Dates: start: 20190312
  17. METOPROLOL. [Concomitant]
     Active Substance: METOPROLOL
     Indication: MUSCLE SPASMS
     Dosage: 25 MG, BID
     Route: 048
     Dates: start: 20190206
  18. CETRIZINE [Concomitant]
     Active Substance: CETIRIZINE HYDROCHLORIDE
     Indication: NAUSEA
     Dosage: 10 MG, QD
     Route: 048
     Dates: start: 20190207, end: 20190211
  19. MORPHIN                            /00036302/ [Concomitant]
     Active Substance: MORPHINE SULFATE
     Indication: SUBILEUS
     Dosage: 10 MG, PRN
     Route: 054
     Dates: start: 20171205, end: 20171216
  20. IBUPROFEN. [Concomitant]
     Active Substance: IBUPROFEN
     Indication: ABDOMINAL PAIN
     Dosage: 400 MG, PRN
     Route: 048
     Dates: start: 20171216, end: 20171216
  21. CETRIZINE [Concomitant]
     Active Substance: CETIRIZINE HYDROCHLORIDE
     Indication: PROPHYLAXIS
     Dosage: 10 MG, ONCE (ONE TIME INTERVENTION)
     Route: 048
     Dates: start: 20180619, end: 20180619
  22. PARACETAMOL [Concomitant]
     Active Substance: ACETAMINOPHEN
     Indication: MUSCULOSKELETAL PAIN
     Dosage: 500 MG, PRN
     Route: 048
     Dates: start: 20170814, end: 20180619
  23. DABIGATRAN ETEXILATE [Concomitant]
     Active Substance: DABIGATRAN ETEXILATE
     Indication: THROMBOSIS PROPHYLAXIS
     Dosage: 220 MG, QD
     Route: 048
     Dates: start: 20180613, end: 20180712
  24. POTASSIUM CHLORIDE. [Concomitant]
     Active Substance: POTASSIUM CHLORIDE
     Dosage: 3000 MG, ONCE (ONE TIME INTERVENTION)
     Route: 048
     Dates: start: 20190211, end: 20190212
  25. ZOPICLON [Concomitant]
     Active Substance: ZOPICLONE
     Indication: INSOMNIA
     Dosage: 7.5 MG, QD
     Route: 048
     Dates: start: 20170203
  26. MORPHIN                            /00036302/ [Concomitant]
     Active Substance: MORPHINE SULFATE
     Indication: ABDOMINAL PAIN
     Dosage: 5 MG, PRN
     Route: 060
     Dates: start: 20171216, end: 20190102
  27. FUROSEMID                          /00032601/ [Concomitant]
     Active Substance: FUROSEMIDE
     Indication: DIURETIC THERAPY
     Dosage: 40 MG,  QAM (IN THE MORNING)
     Route: 048
     Dates: start: 20190210, end: 20190212
  28. ZOPICLON [Concomitant]
     Active Substance: ZOPICLONE
     Dosage: 7.5 MG, HS (AT BEDTIME)
     Route: 048
     Dates: start: 20190209
  29. LOSARTAN AND HYDROCHLOROTHIAZIDE [Concomitant]
     Active Substance: HYDROCHLOROTHIAZIDE\LOSARTAN POTASSIUM
     Indication: HYPERTENSION
     Dosage: 125 MG, QD
     Route: 048
     Dates: start: 20171206
  30. NITROLINGUAL [Concomitant]
     Active Substance: NITROGLYCERIN
     Indication: CHEST PAIN
     Dosage: 0.4 MG, PRN
     Route: 060
     Dates: start: 20181129
  31. PARACETAMOL [Concomitant]
     Active Substance: ACETAMINOPHEN
     Indication: PAIN
     Dosage: 4000 MG, QID
     Route: 048
     Dates: start: 20190208
  32. ASPIRIN                            /00002701/ [Concomitant]
     Active Substance: ASPIRIN
     Indication: THROMBOSIS PROPHYLAXIS
     Dosage: 75 MG, QAM (IN THE MORNING)
     Route: 048
     Dates: start: 20190208

REACTIONS (1)
  - Acute myeloid leukaemia [Not Recovered/Not Resolved]

NARRATIVE: CASE EVENT DATE: 20190318
